FAERS Safety Report 5564871-8 (Version None)
Quarter: 2007Q4

REPORT INFORMATION
  Report Type: 
  Country: None (occurrence: None)
  Receive Date: 20071218
  Receipt Date: 20071217
  Transmission Date: 20080405
  Serious: Yes (Death)
  Sender: FDA-Public Use
  Company Number: JP-BRISTOL-MYERS SQUIBB COMPANY-14016703

PATIENT
  Age: 30 Year
  Sex: Male

DRUGS (3)
  1. ETOPOSIDE [Suspect]
     Indication: GERM CELL CANCER
  2. CISPLATIN [Suspect]
     Indication: GERM CELL CANCER
  3. BLEOMYCIN SULFATE [Suspect]
     Indication: GERM CELL CANCER

REACTIONS (2)
  - ADENOCARCINOMA [None]
  - METASTASIS [None]
